FAERS Safety Report 5059052-0 (Version None)
Quarter: 2006Q3

REPORT INFORMATION
  Report Type: 
  Country: None (occurrence: None)
  Receive Date: 20060719
  Receipt Date: 20060711
  Transmission Date: 20061208
  Serious: Yes (Death)
  Sender: FDA-Public Use
  Company Number: S06-USA-00386-01

PATIENT
  Age: 18 Year
  Sex: Female

DRUGS (2)
  1. LEXAPRO [Suspect]
     Dosage: 10 MG QD PO
     Route: 048
     Dates: start: 20060131, end: 20060101
  2. COUMADIN [Suspect]

REACTIONS (2)
  - DRUG INTERACTION [None]
  - INTERNATIONAL NORMALISED RATIO INCREASED [None]
